FAERS Safety Report 5081738-2 (Version None)
Quarter: 2006Q3

REPORT INFORMATION
  Report Type: 
  Country: None (occurrence: None)
  Receive Date: 20060816
  Receipt Date: 20060804
  Transmission Date: 20061208
  Serious: Yes (Other)
  Sender: FDA-Public Use
  Company Number: GB-BRISTOL-MYERS SQUIBB COMPANY-13465851

PATIENT
  Age: 29 Year
  Sex: Male

DRUGS (5)
  1. CISPLATIN [Suspect]
     Indication: TESTIS CANCER
     Dosage: DAYS 1-5
     Route: 048
  2. ETOPOSIDE [Suspect]
     Indication: TESTIS CANCER
     Dosage: DAYS 1-5
     Route: 048
  3. BLEOMYCIN [Suspect]
     Indication: TESTIS CANCER
     Dosage: DAYS 2, 8,18 FOR CYCLES 1-3 ONLY
     Route: 048
  4. DEXAMETHASONE [Suspect]
     Indication: PROPHYLAXIS OF NAUSEA AND VOMITING
     Route: 048
  5. PREDNISOLONE [Suspect]

REACTIONS (1)
  - OSTEONECROSIS [None]
